FAERS Safety Report 5411628-4 (Version None)
Quarter: 2007Q3

REPORT INFORMATION
  Report Type: 
  Country: None (occurrence: None)
  Receive Date: 20070810
  Receipt Date: 20070731
  Transmission Date: 20080115
  Serious: Yes (Life-Threatening, Other)
  Sender: FDA-Public Use
  Company Number: US-PFIZER INC-2007064405

PATIENT

DRUGS (1)
  1. CHANTIX [Suspect]

REACTIONS (1)
  - TORSADE DE POINTES [None]
